FAERS Safety Report 6316004-8 (Version None)
Quarter: 2009Q3

REPORT INFORMATION
  Report Type: 
  Country: None (occurrence: None)
  Receive Date: 20090820
  Receipt Date: 20090817
  Transmission Date: 20100115
  Serious: Yes (Other)
  Sender: FDA-Public Use
  Company Number: KR-BRISTOL-MYERS SQUIBB COMPANY-14743249

PATIENT
  Age: 11 Year
  Sex: Female

DRUGS (6)
  1. IFOSFAMIDE [Suspect]
     Indication: UTERINE CANCER
     Dosage: 3 DOSES 1 DOSAGEFORM = 3G/M2 CUMULATIVE DOSE 72 G/M2
  2. IFOSFAMIDE [Suspect]
     Indication: METASTASES TO LYMPH NODES
     Dosage: 3 DOSES 1 DOSAGEFORM = 3G/M2 CUMULATIVE DOSE 72 G/M2
  3. DOXORUBICIN HCL [Suspect]
     Indication: UTERINE CANCER
     Dosage: 2 DOSES CUMULATIVE DOSE 400MG/M2
  4. DOXORUBICIN HCL [Suspect]
     Indication: METASTASES TO LYMPH NODES
     Dosage: 2 DOSES CUMULATIVE DOSE 400MG/M2
  5. VINCRISTINE [Suspect]
  6. RADIOTHERAPY [Suspect]

REACTIONS (1)
  - ACUTE LYMPHOCYTIC LEUKAEMIA [None]
